FAERS Safety Report 21658272 (Version 1)
Quarter: 2022Q4

REPORT INFORMATION
  Report Type: Spontaneous
  Country: US (occurrence: None)
  Receive Date: 20221128
  Receipt Date: 20221128
  Transmission Date: 20230113
  Serious: Yes (Death)
  Sender: FDA-Public Use
  Company Number: None

PATIENT
  Age: 86 Year
  Sex: Male

DRUGS (2)
  1. BUMETANIDE [Suspect]
     Active Substance: BUMETANIDE
  2. METOLAZONE [Suspect]
     Active Substance: METOLAZONE

REACTIONS (2)
  - Hyperkalaemia [None]
  - Blood creatinine increased [None]

NARRATIVE: CASE EVENT DATE: 20220628
